FAERS Safety Report 5736351-8 (Version None)
Quarter: 2008Q2

REPORT INFORMATION
  Report Type: 
  Country: None (occurrence: None)
  Receive Date: 20080513
  Receipt Date: 20080507
  Transmission Date: 20081010
  Serious: Yes (Other)
  Sender: FDA-Public Use
  Company Number: US-ELI_LILLY_AND_COMPANY-US200805001573

PATIENT
  Sex: Male
  Weight: 98.866 kg

DRUGS (12)
  1. BYETTA [Suspect]
     Indication: TYPE 2 DIABETES MELLITUS
     Dosage: 5 UG, 2/D
     Route: 058
     Dates: start: 20070401
  2. GLYBURIDE [Concomitant]
     Indication: DIABETES MELLITUS
     Dosage: 5 MG, 2/D
     Route: 048
  3. METFORMIN HCL [Concomitant]
     Indication: DIABETES MELLITUS
     Dosage: 1000 MG, 2/D
     Route: 048
  4. ZOCOR [Concomitant]
     Indication: BLOOD CHOLESTEROL
     Dosage: 40 MG, DAILY (1/D)
     Route: 048
     Dates: start: 20010101, end: 20080430
  5. ZOCOR [Concomitant]
     Dosage: 80 MG, DAILY (1/D)
     Route: 048
     Dates: start: 20080430
  6. AVANDIA [Concomitant]
     Indication: DIABETES MELLITUS
     Dosage: 4 MG, 2/D
     Route: 048
     Dates: end: 20070401
  7. NORVASC [Concomitant]
     Dates: start: 20080505
  8. NITROSTAT [Concomitant]
  9. FEXOFENADINE [Concomitant]
  10. VITAMIN A [Concomitant]
  11. ASCORBIC ACID [Concomitant]
  12. OMEGA 3 [Concomitant]

REACTIONS (4)
  - BLOOD TRIGLYCERIDES INCREASED [None]
  - CATARACT OPERATION [None]
  - MACULAR DEGENERATION [None]
  - VISUAL ACUITY REDUCED [None]
